FAERS Safety Report 21846232 (Version 1)
Quarter: 2023Q1

REPORT INFORMATION
  Report Type: Spontaneous
  Country: FR (occurrence: FR)
  Receive Date: 20230111
  Receipt Date: 20230111
  Transmission Date: 20230417
  Serious: Yes (Death)
  Sender: FDA-Public Use
  Company Number: None

PATIENT
  Age: 42 Year
  Sex: Male

DRUGS (8)
  1. BUPRENORPHINE [Suspect]
     Active Substance: BUPRENORPHINE
     Dates: end: 20220513
  2. DIHYDROCODEINE [Suspect]
     Active Substance: DIHYDROCODEINE
     Dates: end: 20220513
  3. CANNABINOLIC ACID [Suspect]
     Active Substance: CANNABINOLIC ACID
     Dates: end: 20220513
  4. TRAMADOL [Suspect]
     Active Substance: TRAMADOL
     Dates: end: 20220513
  5. METHADONE [Suspect]
     Active Substance: METHADONE HYDROCHLORIDE
     Dates: end: 20220513
  6. MIDOMAFETAMINE [Suspect]
     Active Substance: MIDOMAFETAMINE
     Dates: end: 20220513
  7. DRONABINOL [Suspect]
     Active Substance: DRONABINOL
     Dates: end: 20220513
  8. BENZOYLECGONINE [Suspect]
     Active Substance: BENZOYLECGONINE
     Dates: end: 20220513

REACTIONS (2)
  - Poisoning [Fatal]
  - Asphyxia [Fatal]

NARRATIVE: CASE EVENT DATE: 20220513
